FAERS Safety Report 9098107 (Version 1)
Quarter: 2013Q1

REPORT INFORMATION
  Report Type: Spontaneous
  Country: IE (occurrence: IE)
  Receive Date: 20130213
  Receipt Date: 20130213
  Transmission Date: 20140127
  Serious: Yes (Hospitalization)
  Sender: FDA-Public Use
  Company Number: IE-ELI_LILLY_AND_COMPANY-IE201301009992

PATIENT
  Age: 82 Year
  Sex: Female

DRUGS (9)
  1. FORSTEO [Suspect]
     Indication: OSTEOPOROSIS
     Dosage: 20 UG, QD
     Route: 058
     Dates: start: 20130125
  2. PROTELOS [Concomitant]
     Dosage: UNK, UNKNOWN
     Route: 065
  3. WARFARIN [Concomitant]
     Dosage: UNK, UNKNOWN
     Route: 065
  4. ZOTON [Concomitant]
     Dosage: UNK, UNKNOWN
     Route: 065
  5. CALCICHEW [Concomitant]
     Dosage: UNK, UNKNOWN
     Route: 065
  6. SOTACOR [Concomitant]
     Dosage: UNK, UNKNOWN
     Route: 065
  7. CRESTOR [Concomitant]
     Dosage: UNK, UNKNOWN
     Route: 065
  8. MACRODANTIN [Concomitant]
     Dosage: UNK, UNKNOWN
     Route: 065
  9. QUININE SULPHATE [Concomitant]
     Dosage: UNK, UNKNOWN
     Route: 065

REACTIONS (3)
  - Lower limb fracture [Unknown]
  - Fall [Unknown]
  - Muscle spasms [Unknown]
